FAERS Safety Report 10219558 (Version 1)
Quarter: 2014Q2

REPORT INFORMATION
  Report Type: Spontaneous
  Country: CA (occurrence: CA)
  Receive Date: 20140605
  Receipt Date: 20140605
  Transmission Date: 20141212
  Serious: Yes (Disabling)
  Sender: FDA-Public Use
  Company Number: CA-GLAXOSMITHKLINE-A1075776A

PATIENT
  Age: 40 Year
  Sex: Female
  Weight: 55 kg

DRUGS (3)
  1. FLOVENT [Suspect]
     Indication: PRODUCT USED FOR UNKNOWN INDICATION
     Dosage: 2PUFF PER DAY
     Route: 055
  2. FLOVENT [Suspect]
     Indication: PRODUCT USED FOR UNKNOWN INDICATION
     Dosage: 2PUFF PER DAY
     Route: 055
  3. FLOVENT [Suspect]
     Indication: PRODUCT USED FOR UNKNOWN INDICATION
     Dosage: 2PUFF PER DAY
     Route: 055

REACTIONS (7)
  - Dizziness [Unknown]
  - Fatigue [Unknown]
  - Hypotension [Unknown]
  - Insomnia [Unknown]
  - Nausea [Unknown]
  - Renal disorder [Unknown]
  - Weight decreased [Unknown]
